FAERS Safety Report 7731132-8 (Version None)
Quarter: 2011Q3

REPORT INFORMATION
  Report Type: 
  Country: None (occurrence: None)
  Receive Date: 20110906
  Receipt Date: 20110906
  Transmission Date: 20111222
  Serious: Yes (Other)
  Sender: FDA-Public Use
  Company Number: None

PATIENT
  Age: 42 Year
  Sex: Female
  Weight: 76.203 kg

DRUGS (1)
  1. DEPO-PROVERA [Suspect]
     Indication: MENORRHAGIA
     Dates: start: 20110630, end: 20110930

REACTIONS (2)
  - NO THERAPEUTIC RESPONSE [None]
  - VAGINAL HAEMORRHAGE [None]
